FAERS Safety Report 18544390 (Version 1)
Quarter: 2020Q4

REPORT INFORMATION
  Report Type: Spontaneous
  Country: US (occurrence: US)
  Receive Date: 20201124
  Receipt Date: 20201124
  Transmission Date: 20210114
  Serious: Yes (Life-Threatening)
  Sender: FDA-Public Use
  Company Number: None

PATIENT
  Age: 54 Year
  Sex: Female
  Weight: 62.1 kg

DRUGS (1)
  1. AK-FLUOR [Suspect]
     Active Substance: FLUORESCEIN SODIUM
     Indication: DIABETIC RETINOPATHY
     Route: 040
     Dates: start: 20201120, end: 20201120

REACTIONS (1)
  - Anaphylactic reaction [None]

NARRATIVE: CASE EVENT DATE: 20201120
